FAERS Safety Report 15755192 (Version 1)
Quarter: 2018Q4

REPORT INFORMATION
  Report Type: Spontaneous
  Country: GB (occurrence: GB)
  Receive Date: 20181224
  Receipt Date: 20181224
  Transmission Date: 20190205
  Serious: Yes (Other)
  Sender: FDA-Public Use
  Company Number: GB-ACCORD-096825

PATIENT
  Age: 2 Year
  Sex: Female
  Weight: 10 kg

DRUGS (10)
  1. TACROLIMUS. [Suspect]
     Active Substance: TACROLIMUS
     Indication: PRODUCT USED FOR UNKNOWN INDICATION
  2. DIPROBASE [Concomitant]
     Active Substance: CHLOROCRESOL
     Dosage: APPLY.
     Dates: start: 20170605
  3. HYDROCORTISONE. [Concomitant]
     Active Substance: HYDROCORTISONE
     Dosage: APPLY.
     Dates: start: 20170829
  4. BENZYDAMINE [Concomitant]
     Active Substance: BENZYDAMINE
     Dosage: DOSE: 1
     Dates: start: 20171127, end: 20171202
  5. PIMECROLIMUS. [Concomitant]
     Active Substance: PIMECROLIMUS
     Dosage: APPLY FOR ACUTE FLARE UP, THE...
     Dates: start: 20170915
  6. BONJELA [Concomitant]
     Active Substance: CETALKONIUM CHLORIDE\CHOLINE SALICYLATE\MENTHOL
     Dosage: USE AS DIRECTED.
     Dates: start: 20171127, end: 20171128
  7. PROTOPIC [Concomitant]
     Active Substance: TACROLIMUS
     Dosage: APPLY AS DIRECTED BY HOSPITAL.
     Dates: start: 20180125, end: 20180205
  8. PREDNISOLONE. [Concomitant]
     Active Substance: PREDNISOLONE
     Dates: start: 20171201, end: 20171206
  9. CLARITHROMYCIN. [Concomitant]
     Active Substance: CLARITHROMYCIN
     Dates: start: 20171201, end: 20171208
  10. FLUCLOXACILLIN [Concomitant]
     Active Substance: FLUCLOXACILLIN
     Dates: start: 20180103, end: 20180110

REACTIONS (1)
  - Rash erythematous [Recovered/Resolved]

NARRATIVE: CASE EVENT DATE: 20180215
